FAERS Safety Report 4524013-4 (Version None)
Quarter: 2004Q4

REPORT INFORMATION
  Report Type: 
  Country: None (occurrence: None)
  Receive Date: 20041210
  Receipt Date: 20041105
  Transmission Date: 20050328
  Serious: Yes (Other)
  Sender: FDA-Public Use
  Company Number: US-ABBOTT-04P-163-0279862-00

PATIENT
  Sex: Female
  Weight: 60.836 kg

DRUGS (8)
  1. HUMIRA [Suspect]
     Indication: RHEUMATOID ARTHRITIS
     Route: 058
     Dates: start: 20030306, end: 20041111
  2. LEVOTHYROXINE SODIUM [Concomitant]
     Indication: HYPOTHYROIDISM
     Route: 048
     Dates: start: 19990101
  3. SULFAZINE [Concomitant]
     Indication: RHEUMATOID ARTHRITIS
     Dosage: 2-500MG BID
     Route: 048
     Dates: start: 20020101
  4. HYDROXYCHLOROQUINE PHOSPHATE [Concomitant]
     Indication: RHEUMATOID ARTHRITIS
     Route: 048
     Dates: start: 20020101
  5. PROPACET 100 [Concomitant]
     Indication: RHEUMATOID ARTHRITIS
     Route: 048
     Dates: start: 19820101
  6. CLONAZEPAM [Concomitant]
     Indication: RESTLESS LEGS SYNDROME
     Route: 048
     Dates: start: 20000101
  7. SULFASALAZINE [Concomitant]
     Indication: RHEUMATOID ARTHRITIS
     Route: 048
  8. GOLD SHOTS [Concomitant]
     Indication: RHEUMATOID ARTHRITIS
     Route: 050

REACTIONS (3)
  - DEMYELINATION [None]
  - PAIN IN EXTREMITY [None]
  - POLYNEUROPATHY [None]
